FAERS Safety Report 24156663 (Version 1)
Quarter: 2024Q3

REPORT INFORMATION
  Report Type: Spontaneous
  Country: JP (occurrence: JP)
  Receive Date: 20240731
  Receipt Date: 20240731
  Transmission Date: 20241017
  Serious: Yes (Death, Other)
  Sender: EXELIXIS
  Company Number: JP-TAKEDA-2023TJP014658

PATIENT
  Age: 74 Year
  Sex: Female
  Weight: 56 kg

DRUGS (6)
  1. CABOMETYX [Suspect]
     Active Substance: CABOZANTINIB S-MALATE
     Indication: Renal cell carcinoma
     Dosage: 60 MG, QD
     Route: 048
     Dates: start: 20211122, end: 20211226
  2. CABOMETYX [Suspect]
     Active Substance: CABOZANTINIB S-MALATE
     Dosage: 40 MG, QD
     Route: 048
     Dates: start: 20211227, end: 20220124
  3. CABOMETYX [Suspect]
     Active Substance: CABOZANTINIB S-MALATE
     Dosage: 20 MG, QD
     Route: 048
     Dates: start: 20220214, end: 20220509
  4. TRAMADOL [Concomitant]
     Active Substance: TRAMADOL\TRAMADOL HYDROCHLORIDE
     Indication: Back pain
     Dosage: UNK
     Route: 048
     Dates: start: 20211019, end: 20220123
  5. LOXOPROFEN SODIUM [Concomitant]
     Active Substance: LOXOPROFEN SODIUM
     Indication: Bone pain
     Dosage: UNK
     Route: 048
     Dates: start: 20220221
  6. MIROGABALIN BESYLATE [Concomitant]
     Active Substance: MIROGABALIN BESYLATE
     Indication: Bone pain
     Dosage: UNK
     Route: 048
     Dates: start: 20220602

REACTIONS (1)
  - Death [Fatal]

NARRATIVE: CASE EVENT DATE: 20230411
